FAERS Safety Report 22092720 (Version 1)
Quarter: 2023Q1

REPORT INFORMATION
  Report Type: Spontaneous
  Country: US (occurrence: None)
  Receive Date: 20230313
  Receipt Date: 20230313
  Transmission Date: 20230417
  Serious: No
  Sender: FDA-Public Use
  Company Number: None

PATIENT
  Age: 49 Year
  Sex: Female

DRUGS (1)
  1. FORTEO [Suspect]
     Active Substance: TERIPARATIDE
     Dosage: FREQUENCY : TWICE A DAY;?
     Route: 058
     Dates: start: 202210

REACTIONS (2)
  - Product use issue [None]
  - Intentional product use issue [None]

NARRATIVE: CASE EVENT DATE: 20230301
